FAERS Safety Report 15246746 (Version 2)
Quarter: 2018Q3

REPORT INFORMATION
  Report Type: Report from Study
  Country: None (occurrence: US)
  Receive Date: 20180806
  Receipt Date: 20180920
  Transmission Date: 20181010
  Serious: Yes (Other)
  Sender: FDA-Public Use
  Company Number: US-ABBVIE-18K-163-2442533-00

PATIENT
  Age: 58 Year
  Sex: Male

DRUGS (1)
  1. HUMIRA [Suspect]
     Active Substance: ADALIMUMAB
     Indication: PSORIASIS
     Route: 058

REACTIONS (5)
  - Dry skin [Unknown]
  - Drug effect decreased [Not Recovered/Not Resolved]
  - Psoriasis [Recovering/Resolving]
  - Skin induration [Unknown]
  - Retinal detachment [Recovering/Resolving]

NARRATIVE: CASE EVENT DATE: 2018
